FAERS Safety Report 7428754-0 (Version None)
Quarter: 2011Q2

REPORT INFORMATION
  Report Type: 
  Country: None (occurrence: None)
  Receive Date: 20110421
  Receipt Date: 20110419
  Transmission Date: 20111010
  Serious: Yes (Other)
  Sender: FDA-Public Use
  Company Number: AU-PFIZER INC-2011084885

PATIENT
  Age: 62 Year
  Sex: Female

DRUGS (4)
  1. CHAMPIX [Suspect]
     Dosage: UNK
  2. VITAMIN D [Concomitant]
     Dosage: UNK
  3. CALCIUM [Concomitant]
     Dosage: UNK
  4. CARTIA XT [Concomitant]
     Dosage: UNK

REACTIONS (7)
  - ABNORMAL DREAMS [None]
  - LOWER LIMB FRACTURE [None]
  - HALLUCINATION [None]
  - CONSTIPATION [None]
  - INSOMNIA [None]
  - NAUSEA [None]
  - FALL [None]
